FAERS Safety Report 23629790 (Version 1)
Quarter: 2024Q1

REPORT INFORMATION
  Report Type: Spontaneous
  Country: US (occurrence: US)
  Receive Date: 20240314
  Receipt Date: 20240314
  Transmission Date: 20240410
  Serious: No
  Sender: FDA-Public Use
  Company Number: US-CIPLA LTD.-2023US05039

PATIENT

DRUGS (5)
  1. SERTRALINE [Suspect]
     Active Substance: SERTRALINE HYDROCHLORIDE
     Indication: Depression
     Dosage: ONE AND HALF TABLET, QD
     Route: 048
     Dates: start: 2020
  2. ALPRAZOLAM [Concomitant]
     Active Substance: ALPRAZOLAM
     Indication: Anxiety
     Dosage: 1 MG / 1 OR 2 TABLETS AS NEEDED, PRN
     Route: 065
     Dates: start: 2011
  3. LEVOTHYROXINE [Concomitant]
     Active Substance: LEVOTHYROXINE\LEVOTHYROXINE SODIUM
     Indication: Thyroid disorder
     Dosage: 75 MCG / 1 TABLET A DAY
     Route: 065
     Dates: start: 2008
  4. MIRTAZAPINE [Concomitant]
     Active Substance: MIRTAZAPINE
     Indication: Depression
     Dosage: 7.5 MG / 1 TABLET A DAY
     Route: 065
     Dates: start: 202302
  5. SIMVASTATIN [Concomitant]
     Active Substance: SIMVASTATIN
     Indication: Blood cholesterol increased
     Dosage: 40 MG / 1 TABLET A DAY
     Route: 065

REACTIONS (2)
  - Drug screen false positive [Unknown]
  - Amphetamines positive [Unknown]

NARRATIVE: CASE EVENT DATE: 20230816
